FAERS Safety Report 8080047-7 (Version None)
Quarter: 2012Q1

REPORT INFORMATION
  Report Type: 
  Country: None (occurrence: None)
  Receive Date: 20120128
  Receipt Date: 20110724
  Transmission Date: 20120608
  Serious: No
  Sender: FDA-Public Use
  Company Number: US-ABBOTT-11P-163-0841329-00

PATIENT
  Age: 79 Year
  Sex: Female

DRUGS (5)
  1. LEVOTHYROXINE SODIUM [Concomitant]
     Indication: THYROID DISORDER
  2. AMLODIPINE [Concomitant]
     Indication: HYPERTENSION
  3. ATENOLOL [Concomitant]
     Indication: HYPERTENSION
  4. FOSAMAX [Concomitant]
     Indication: OSTEOPOROSIS
  5. HUMIRA [Suspect]
     Indication: PSORIASIS
     Dosage: ONE TIME DOSE
     Dates: start: 20110601, end: 20110601

REACTIONS (1)
  - ERYTHEMA [None]
